FAERS Safety Report 7768177-8 (Version None)
Quarter: 2011Q3

REPORT INFORMATION
  Report Type: 
  Country: None (occurrence: None)
  Receive Date: 20110922
  Receipt Date: 20110922
  Transmission Date: 20111222
  Serious: No
  Sender: FDA-Public Use
  Company Number: None

PATIENT
  Age: 48 Year
  Sex: Female
  Weight: 90.718 kg

DRUGS (1)
  1. FLUCONAZOLE [Suspect]
     Dosage: 150MG
     Route: 042

REACTIONS (1)
  - RASH [None]
